FAERS Safety Report 25087197 (Version 1)
Quarter: 2025Q1

REPORT INFORMATION
  Report Type: Report from Study
  Country: EG (occurrence: EG)
  Receive Date: 20250318
  Receipt Date: 20250318
  Transmission Date: 20250409
  Serious: Yes (Disabling)
  Sender: ROCHE
  Company Number: EG-ROCHE-10000225039

PATIENT
  Age: 35 Year
  Sex: Female
  Weight: 60 kg

DRUGS (1)
  1. OCREVUS [Suspect]
     Active Substance: OCRELIZUMAB
     Indication: Multiple sclerosis
     Route: 042
     Dates: start: 20220811

REACTIONS (6)
  - Multiple sclerosis [Not Recovered/Not Resolved]
  - Vomiting [Not Recovered/Not Resolved]
  - Muscular weakness [Not Recovered/Not Resolved]
  - Movement disorder [Not Recovered/Not Resolved]
  - Fatigue [Not Recovered/Not Resolved]
  - Product dose omission issue [Unknown]

NARRATIVE: CASE EVENT DATE: 20240824
